FAERS Safety Report 13774886 (Version 8)
Quarter: 2020Q4

REPORT INFORMATION
  Report Type: Spontaneous
  Country: US (occurrence: US)
  Receive Date: 20170720
  Receipt Date: 20201125
  Transmission Date: 20210113
  Serious: Yes (Hospitalization, Congenital Anomaly, Other)
  Sender: FDA-Public Use
  Company Number: PHEH2017US022212

PATIENT
  Age: 0 Day
  Sex: Male

DRUGS (2)
  1. ZOFRAN ODT [Suspect]
     Active Substance: ONDANSETRON HYDROCHLORIDE
     Indication: FOETAL EXPOSURE DURING PREGNANCY
     Route: 064
  2. ZOFRAN [Suspect]
     Active Substance: ONDANSETRON HYDROCHLORIDE
     Indication: FOETAL EXPOSURE DURING PREGNANCY
     Route: 064

REACTIONS (41)
  - Cleft lip [Unknown]
  - Congenital umbilical hernia [Unknown]
  - Upper airway obstruction [Unknown]
  - Language disorder [Unknown]
  - Jaundice neonatal [Unknown]
  - Conjunctivitis [Unknown]
  - Respiratory distress [Unknown]
  - Hypothermia [Unknown]
  - Injury [Unknown]
  - Speech disorder [Unknown]
  - Otitis media [Unknown]
  - Constipation [Unknown]
  - Pharyngitis [Unknown]
  - Headache [Unknown]
  - Lymphadenitis [Unknown]
  - Foetal exposure during pregnancy [Unknown]
  - Candida infection [Unknown]
  - Dysphagia [Unknown]
  - Apnoea [Unknown]
  - Pneumonia [Unknown]
  - Dysarthria [Unknown]
  - Urinary tract infection [Unknown]
  - Pleural effusion [Unknown]
  - Pyrexia [Unknown]
  - Acute respiratory failure [Unknown]
  - Gastrooesophageal reflux disease [Unknown]
  - Hypoacusis [Unknown]
  - Diarrhoea [Unknown]
  - Cleft palate [Unknown]
  - Bradycardia [Unknown]
  - Dysphonia [Unknown]
  - Transient tachypnoea of the newborn [Unknown]
  - Premature baby [Unknown]
  - Pyelocaliectasis [Unknown]
  - Anaemia neonatal [Unknown]
  - Ear pain [Unknown]
  - Kidney small [Unknown]
  - Feeding disorder [Unknown]
  - Asthma [Unknown]
  - Viral infection [Unknown]
  - Dental caries [Unknown]

NARRATIVE: CASE EVENT DATE: 20060126
